FAERS Safety Report 7865899-5 (Version None)
Quarter: 2011Q4

REPORT INFORMATION
  Report Type: 
  Country: None (occurrence: None)
  Receive Date: 20111028
  Receipt Date: 20110317
  Transmission Date: 20120403
  Serious: No
  Sender: FDA-Public Use
  Company Number: US-GLAXOSMITHKLINE-A0918679A

PATIENT
  Age: 71 Year
  Sex: Female

DRUGS (10)
  1. ADVAIR DISKUS 100/50 [Suspect]
     Indication: PRODUCT USED FOR UNKNOWN INDICATION
     Dosage: 1PUFF TWICE PER DAY
     Route: 055
     Dates: start: 20010101
  2. ASPIRIN [Concomitant]
  3. SPIRIVA [Concomitant]
  4. IPRATROPIUM BROMIDE [Concomitant]
  5. BISOPROLOL FUMARATE [Concomitant]
  6. VITAMIN TAB [Concomitant]
  7. LOSARTAN WITH HYDROCHLOROTHIAZIDE [Concomitant]
  8. UNSPECIFIED MEDICATION [Concomitant]
     Indication: ILL-DEFINED DISORDER
  9. OMEPRAZOLE [Concomitant]
  10. FEXOFENADINE [Concomitant]

REACTIONS (2)
  - PRODUCT QUALITY ISSUE [None]
  - DRUG INEFFECTIVE [None]
